FAERS Safety Report 12290882 (Version 1)
Quarter: 2016Q2

REPORT INFORMATION
  Report Type: Report from Study
  Country: ZA (occurrence: ZA)
  Receive Date: 20160421
  Receipt Date: 20160421
  Transmission Date: 20160815
  Serious: Yes (Hospitalization)
  Sender: FDA-Public Use
  Company Number: ZA-AMGEN-ZAFCT2016049750

PATIENT
  Age: 59 Year
  Sex: Female
  Weight: 111.7 kg

DRUGS (3)
  1. ETANERCEPT [Suspect]
     Active Substance: ETANERCEPT
     Indication: RHEUMATOID ARTHRITIS
     Dosage: UNK
     Route: 058
     Dates: start: 20160209
  2. VENTEZE                            /00139501/ [Concomitant]
     Indication: ASTHMA
     Dosage: 200 UG, 2X/DAY
     Route: 055
     Dates: start: 201203
  3. BUDEFLAM [Concomitant]
     Indication: ASTHMA
     Dosage: 200 MG, 2X/DAY (BD)
     Route: 055
     Dates: start: 201203

REACTIONS (2)
  - Asthma [Recovered/Resolved]
  - Condition aggravated [Recovered/Resolved]

NARRATIVE: CASE EVENT DATE: 20160404
